FAERS Safety Report 10700476 (Version 3)
Quarter: 2015Q2

REPORT INFORMATION
  Report Type: Spontaneous
  Country: US (occurrence: US)
  Receive Date: 20150109
  Receipt Date: 20150415
  Transmission Date: 20150821
  Serious: Yes (Death, Other)
  Sender: FDA-Public Use
  Company Number: US-PFIZER INC-2015006723

PATIENT
  Age: 74 Year
  Sex: Male
  Weight: 73 kg

DRUGS (13)
  1. FISH OIL [Concomitant]
     Active Substance: FISH OIL
     Dosage: 1200 MG, UNK
  2. TRAMADOL [Concomitant]
     Active Substance: TRAMADOL
     Indication: PAIN
     Dosage: 50 MG, AS NEEDED
  3. SUTENT [Suspect]
     Active Substance: SUNITINIB MALATE
     Indication: METASTATIC RENAL CELL CARCINOMA
     Dosage: 50 MG, DAILY
     Route: 048
     Dates: start: 20141201, end: 20150102
  4. PRAVASTATIN [Concomitant]
     Active Substance: PRAVASTATIN\PRAVASTATIN SODIUM
     Dosage: 40 MG, UNK
  5. CENTRUM SILVER [Concomitant]
     Active Substance: VITAMINS
     Dosage: 1 DF, DAILY
  6. WARFARIN [Concomitant]
     Active Substance: WARFARIN
     Dosage: 2 MG, UNK
  7. AMLODIPINE BESILATE [Concomitant]
     Active Substance: AMLODIPINE BESYLATE
     Dosage: 5 MG, UNK
  8. PANTOPRAZOLE [Concomitant]
     Active Substance: PANTOPRAZOLE SODIUM
     Dosage: 40 MG, UNK
  9. ZOFRAN [Concomitant]
     Active Substance: ONDANSETRON HYDROCHLORIDE
     Indication: NAUSEA
     Dosage: 8 MG, AS NEEDED
  10. COUMADIN [Suspect]
     Active Substance: WARFARIN SODIUM
     Dosage: 2 MG, QD
  11. MAGNESIUM OXIDE. [Concomitant]
     Active Substance: MAGNESIUM OXIDE
     Dosage: 400 MG, UNK
  12. METFORMIN [Concomitant]
     Active Substance: METFORMIN HYDROCHLORIDE
     Dosage: 500 MG, UNK
  13. VITAMIN D [Concomitant]
     Active Substance: CHOLECALCIFEROL
     Dosage: 50000 IU, WEEKLY (EVERY SATURDAY)

REACTIONS (13)
  - Skull fractured base [Fatal]
  - Disease progression [Fatal]
  - Decreased appetite [Recovering/Resolving]
  - Asthenia [Unknown]
  - Fall [Fatal]
  - Metastatic renal cell carcinoma [Fatal]
  - Haemoglobin decreased [Unknown]
  - Yellow skin [Recovered/Resolved]
  - Oral pain [Unknown]
  - Contusion [Unknown]
  - Haematemesis [Unknown]
  - Nausea [Unknown]
  - Fatigue [Unknown]

NARRATIVE: CASE EVENT DATE: 20141208
